FAERS Safety Report 5034085-9 (Version None)
Quarter: 2006Q2

REPORT INFORMATION
  Report Type: 
  Country: None (occurrence: None)
  Receive Date: 20060518
  Receipt Date: 20050426
  Transmission Date: 20061013
  Serious: Yes (Hospitalization, Other)
  Sender: FDA-Public Use
  Company Number: 2005067276

PATIENT
  Sex: Female

DRUGS (2)
  1. PROVERA [Suspect]
     Indication: HORMONE REPLACEMENT THERAPY
  2. ESTROGENS ESTERIFIED (ESTROGENS ESTERIFIED) [Suspect]
     Indication: HORMONE REPLACEMENT THERAPY

REACTIONS (1)
  - EMBOLISM [None]
